FAERS Safety Report 15246838 (Version 1)
Quarter: 2018Q3

REPORT INFORMATION
  Report Type: Spontaneous
  Country: CA (occurrence: CA)
  Receive Date: 20180806
  Receipt Date: 20180806
  Transmission Date: 20181010
  Serious: Yes (Other)
  Sender: FDA-Public Use
  Company Number: PHHY2018CA061545

PATIENT
  Age: 69 Year
  Sex: Female

DRUGS (1)
  1. VOTRIENT [Suspect]
     Active Substance: PAZOPANIB HYDROCHLORIDE
     Indication: RENAL CANCER
     Dosage: 400 MG, QD
     Route: 048

REACTIONS (7)
  - Neutrophil count increased [Unknown]
  - Stomatitis [Unknown]
  - White blood cell count increased [Unknown]
  - Blood lactate dehydrogenase decreased [Unknown]
  - Haemoglobin decreased [Unknown]
  - Eczema [Unknown]
  - Gamma-glutamyltransferase increased [Unknown]
